FAERS Safety Report 25263501 (Version 3)
Quarter: 2025Q4

REPORT INFORMATION
  Report Type: Report from Study
  Country: JP (occurrence: JP)
  Receive Date: 20250502
  Receipt Date: 20251007
  Transmission Date: 20260117
  Serious: Yes (Death)
  Sender: SHIONOGI
  Company Number: JP-shionogi-202500004508

PATIENT
  Age: 81 Year
  Sex: Male
  Weight: 46 kg

DRUGS (6)
  1. CEFIDEROCOL [Suspect]
     Active Substance: CEFIDEROCOL
     Indication: Pneumonia
     Route: 041
     Dates: start: 20250207, end: 20250215
  2. CEFEPIME HYDROCHLORIDE [Concomitant]
     Active Substance: CEFEPIME HYDROCHLORIDE
     Indication: Pneumonia
     Route: 065
     Dates: start: 20250205, end: 20250207
  3. CILOSTAZOL [Concomitant]
     Active Substance: CILOSTAZOL
     Indication: Product used for unknown indication
     Dosage: SINCE BEFORE THE START OF FETROJA
     Route: 048
     Dates: end: 20250215
  4. AMLODIPINE BESYLATE [Concomitant]
     Active Substance: AMLODIPINE BESYLATE
     Indication: Product used for unknown indication
     Dosage: SINCE BEFORE THE START OF FETROJA
     Route: 048
     Dates: end: 20250215
  5. LANSOPRAZOLE [Concomitant]
     Active Substance: LANSOPRAZOLE
     Indication: Product used for unknown indication
     Dosage: SINCE BEFORE THE START OF FETROJA
     Route: 048
     Dates: end: 20250215
  6. DICLOFENAC SODIUM [Concomitant]
     Active Substance: DICLOFENAC SODIUM
     Indication: Product used for unknown indication
     Dosage: SINCE BEFORE THE START OF FETROJA
     Route: 065
     Dates: end: 20250215

REACTIONS (2)
  - Pneumonia [Fatal]
  - Hepatic function abnormal [Unknown]

NARRATIVE: CASE EVENT DATE: 20250214
